FAERS Safety Report 16233535 (Version 1)
Quarter: 2019Q2

REPORT INFORMATION
  Report Type: Spontaneous
  Country: CN (occurrence: CN)
  Receive Date: 20190424
  Receipt Date: 20190424
  Transmission Date: 20190711
  Serious: Yes (Hospitalization)
  Sender: FDA-Public Use
  Company Number: CN-ELI_LILLY_AND_COMPANY-CN201904010814

PATIENT
  Age: 56 Year
  Sex: Male
  Weight: 70 kg

DRUGS (6)
  1. INSULIN HUMAN [Suspect]
     Active Substance: INSULIN HUMAN
     Indication: TYPE 2 DIABETES MELLITUS
     Dosage: 10-20 IU, DAILY, EACH MORNING
     Route: 058
     Dates: start: 2007
  2. INSULIN HUMAN [Suspect]
     Active Substance: INSULIN HUMAN
     Dosage: 10- 20 IU DAILY, EACH NIGHT
     Route: 058
     Dates: start: 2007
  3. INSULIN HUMAN [Suspect]
     Active Substance: INSULIN HUMAN
     Dosage: 30 IU, DAILY, EACH NIGHT
     Route: 058
  4. XIAOKE [Concomitant]
     Indication: TYPE 2 DIABETES MELLITUS
     Dosage: UNK, TID, 15 PILLS
     Route: 048
  5. INSULIN HUMAN [Suspect]
     Active Substance: INSULIN HUMAN
     Dosage: 30 IU, DAILY, EACH MORNING
     Route: 058
  6. METFORMIN [Concomitant]
     Active Substance: METFORMIN HYDROCHLORIDE
     Indication: TYPE 2 DIABETES MELLITUS
     Dosage: UNK, BID, 2 PILLS EACH TIME
     Route: 048

REACTIONS (5)
  - Hypoaesthesia [Recovering/Resolving]
  - Blood glucose abnormal [Unknown]
  - Peripheral coldness [Recovering/Resolving]
  - Intentional product misuse [Unknown]
  - Hypertension [Recovering/Resolving]

NARRATIVE: CASE EVENT DATE: 2017
